FAERS Safety Report 4909424-7 (Version None)
Quarter: 2006Q1

REPORT INFORMATION
  Report Type: 
  Country: None (occurrence: None)
  Receive Date: 20060213
  Receipt Date: 20050315
  Transmission Date: 20060701
  Serious: Yes (Hospitalization, Disabling, Other)
  Sender: FDA-Public Use
  Company Number: US-MERCK-0503USA03192

PATIENT
  Age: 69 Year
  Sex: Female
  Weight: 64 kg

DRUGS (9)
  1. VIOXX [Suspect]
     Route: 048
     Dates: start: 19990101, end: 20040901
  2. OS-CAL [Concomitant]
     Route: 048
  3. LIPITOR [Concomitant]
     Route: 048
  4. MAGNESIUM SULFATE [Concomitant]
     Route: 048
  5. PROCARDIA XL [Concomitant]
     Route: 048
  6. FOSAMAX [Concomitant]
     Route: 048
  7. COLACE [Concomitant]
     Route: 048
  8. PREVACID [Concomitant]
     Route: 048
  9. COUMADIN [Concomitant]
     Route: 048

REACTIONS (9)
  - CARDIAC FAILURE [None]
  - CARDIAC PACEMAKER INSERTION [None]
  - CEREBROVASCULAR ACCIDENT [None]
  - CHEST PAIN [None]
  - HEPATOCELLULAR DAMAGE [None]
  - MYOCARDIAL INFARCTION [None]
  - RENAL DISORDER [None]
  - THROMBOSIS [None]
  - ULCER [None]
